FAERS Safety Report 12917574 (Version 2)
Quarter: 2017Q1

REPORT INFORMATION
  Report Type: Report from Study
  Country: JP (occurrence: JP)
  Receive Date: 20161107
  Receipt Date: 20170208
  Transmission Date: 20170428
  Serious: No
  Sender: FDA-Public Use
  Company Number: PHJP2016JP031778

PATIENT
  Age: 79 Year
  Sex: Female

DRUGS (35)
  1. OFATUMUMAB [Suspect]
     Active Substance: OFATUMUMAB
     Dosage: 2000 MG, QD
     Route: 041
     Dates: start: 20151015, end: 20151015
  2. PREDNISOLONE. [Concomitant]
     Active Substance: PREDNISOLONE
     Indication: PRODUCT USED FOR UNKNOWN INDICATION
     Dosage: 100 MG, QD
     Route: 065
     Dates: start: 20150821, end: 20150821
  3. PREDNISOLONE. [Concomitant]
     Active Substance: PREDNISOLONE
     Dosage: 100 MG, QD
     Route: 065
     Dates: start: 20151001, end: 20151001
  4. PREDNISOLONE. [Concomitant]
     Active Substance: PREDNISOLONE
     Dosage: 100 MG, QD
     Route: 065
     Dates: start: 20151015, end: 20151015
  5. BRUFEN [Concomitant]
     Active Substance: IBUPROFEN
     Dosage: 200 MG, QD
     Route: 065
     Dates: start: 20150828, end: 20150828
  6. BRUFEN [Concomitant]
     Active Substance: IBUPROFEN
     Dosage: 200 MG, QD
     Route: 065
     Dates: start: 20150904, end: 20150904
  7. BRUFEN [Concomitant]
     Active Substance: IBUPROFEN
     Dosage: 200 MG, QD
     Route: 065
     Dates: start: 20151001, end: 20151001
  8. POLARAMINE [Concomitant]
     Active Substance: DEXCHLORPHENIRAMINE MALEATE
     Dosage: 2 MG, QD
     Route: 065
     Dates: start: 20150904, end: 20150904
  9. PREDNISOLONE. [Concomitant]
     Active Substance: PREDNISOLONE
     Dosage: 100 MG, QD
     Route: 065
     Dates: start: 20151008, end: 20151008
  10. OFATUMUMAB [Suspect]
     Active Substance: OFATUMUMAB
     Indication: CHRONIC LYMPHOCYTIC LEUKAEMIA
     Dosage: 300 MG, QD
     Route: 041
     Dates: start: 20150821, end: 20150821
  11. OFATUMUMAB [Suspect]
     Active Substance: OFATUMUMAB
     Dosage: 2000 MG, QD
     Route: 041
     Dates: start: 20151008, end: 20151008
  12. BRUFEN [Concomitant]
     Active Substance: IBUPROFEN
     Dosage: 200 MG, QD
     Route: 065
     Dates: start: 20150924, end: 20150924
  13. POLARAMINE [Concomitant]
     Active Substance: DEXCHLORPHENIRAMINE MALEATE
     Indication: PRODUCT USED FOR UNKNOWN INDICATION
     Dosage: 2 MG, QD
     Route: 065
     Dates: start: 20150821, end: 20150821
  14. POLARAMINE [Concomitant]
     Active Substance: DEXCHLORPHENIRAMINE MALEATE
     Dosage: 2 MG, QD
     Route: 065
     Dates: start: 20150917, end: 20150917
  15. POLARAMINE [Concomitant]
     Active Substance: DEXCHLORPHENIRAMINE MALEATE
     Dosage: 2 MG, QD
     Route: 065
     Dates: start: 20150924, end: 20150924
  16. POLARAMINE [Concomitant]
     Active Substance: DEXCHLORPHENIRAMINE MALEATE
     Dosage: 2 MG, QD
     Route: 065
     Dates: start: 20151001, end: 20151001
  17. OFATUMUMAB [Suspect]
     Active Substance: OFATUMUMAB
     Dosage: 2000 MG, QD
     Route: 041
     Dates: start: 20150828, end: 20150828
  18. OFATUMUMAB [Suspect]
     Active Substance: OFATUMUMAB
     Dosage: 2000 MG, QD
     Route: 041
     Dates: start: 20151001, end: 20151001
  19. PREDNISOLONE. [Concomitant]
     Active Substance: PREDNISOLONE
     Dosage: 100 MG, QD
     Route: 065
     Dates: start: 20150828, end: 20150828
  20. BRUFEN [Concomitant]
     Active Substance: IBUPROFEN
     Dosage: 200 MG, QD
     Route: 065
     Dates: start: 20151015, end: 20151015
  21. POLARAMINE [Concomitant]
     Active Substance: DEXCHLORPHENIRAMINE MALEATE
     Dosage: 2 MG, QD
     Route: 065
     Dates: start: 20150828, end: 20150828
  22. POLARAMINE [Concomitant]
     Active Substance: DEXCHLORPHENIRAMINE MALEATE
     Dosage: 2 MG, QD
     Route: 065
     Dates: start: 20151015, end: 20151015
  23. ZOVIRAX [Concomitant]
     Active Substance: ACYCLOVIR
     Indication: PRODUCT USED FOR UNKNOWN INDICATION
     Dosage: 200 MG, QD
     Route: 065
  24. PREDNISOLONE. [Concomitant]
     Active Substance: PREDNISOLONE
     Dosage: 100 MG, QD
     Route: 065
     Dates: start: 20150917, end: 20150917
  25. FLUDARA [Concomitant]
     Active Substance: FLUDARABINE PHOSPHATE
     Indication: CHRONIC LYMPHOCYTIC LEUKAEMIA
     Dosage: 60 MG, QD
     Route: 065
  26. OFATUMUMAB [Suspect]
     Active Substance: OFATUMUMAB
     Dosage: 2000 MG, QD
     Route: 041
     Dates: start: 20150904, end: 20150904
  27. BRUFEN [Concomitant]
     Active Substance: IBUPROFEN
     Dosage: 200 MG, QD
     Route: 065
     Dates: start: 20150917, end: 20150917
  28. POLARAMINE [Concomitant]
     Active Substance: DEXCHLORPHENIRAMINE MALEATE
     Dosage: 2 MG, QD
     Route: 065
     Dates: start: 20151008, end: 20151008
  29. BAKTAR [Concomitant]
     Active Substance: SULFAMETHOXAZOLE\TRIMETHOPRIM
     Indication: PRODUCT USED FOR UNKNOWN INDICATION
     Dosage: 1 DF, QD
     Route: 048
  30. OFATUMUMAB [Suspect]
     Active Substance: OFATUMUMAB
     Dosage: 2000 MG, QD
     Route: 041
     Dates: start: 20150917, end: 20150917
  31. OFATUMUMAB [Suspect]
     Active Substance: OFATUMUMAB
     Dosage: 2000 MG, QD
     Route: 041
     Dates: start: 20150924, end: 20150924
  32. PREDNISOLONE. [Concomitant]
     Active Substance: PREDNISOLONE
     Dosage: 100 MG, QD
     Route: 065
     Dates: start: 20150904, end: 20150904
  33. BRUFEN [Concomitant]
     Active Substance: IBUPROFEN
     Indication: PRODUCT USED FOR UNKNOWN INDICATION
     Dosage: 2000 MG, QD
     Route: 065
     Dates: start: 20150821, end: 20150821
  34. BRUFEN [Concomitant]
     Active Substance: IBUPROFEN
     Dosage: 200 MG, QD
     Route: 065
     Dates: start: 20151008, end: 20151008
  35. PREDNISOLONE. [Concomitant]
     Active Substance: PREDNISOLONE
     Dosage: 100 MG, QD
     Route: 065
     Dates: start: 20150924, end: 20150924

REACTIONS (1)
  - Rash [Recovered/Resolved]

NARRATIVE: CASE EVENT DATE: 20150821
